FAERS Safety Report 6349775-5 (Version None)
Quarter: 2009Q3

REPORT INFORMATION
  Report Type: 
  Country: None (occurrence: None)
  Receive Date: 20090911
  Receipt Date: 20090831
  Transmission Date: 20100115
  Serious: Yes (Other)
  Sender: FDA-Public Use
  Company Number: FR-WATSON-2009-07199

PATIENT
  Age: 20 Year
  Sex: Male

DRUGS (1)
  1. PREDNISONE (WATSON LABORATORIES) [Suspect]
     Indication: DRUG USE FOR UNKNOWN INDICATION
     Dosage: 60 MG, SINGLE
     Route: 048

REACTIONS (2)
  - HYPOKALAEMIA [None]
  - PARALYSIS [None]
